FAERS Safety Report 20648602 (Version 1)
Quarter: 2022Q1

REPORT INFORMATION
  Report Type: Spontaneous
  Country: US (occurrence: None)
  Receive Date: 20220328
  Receipt Date: 20220328
  Transmission Date: 20220423
  Serious: No
  Sender: FDA-Public Use
  Company Number: None

PATIENT
  Age: 21 Year
  Sex: Female

DRUGS (1)
  1. DEFERASIROX [Suspect]
     Active Substance: DEFERASIROX
     Indication: Congenital aplastic anaemia
     Dosage: FREQUENCY : DAILY;?
     Route: 048

REACTIONS (4)
  - Nausea [None]
  - Diarrhoea [None]
  - Micturition urgency [None]
  - Product substitution issue [None]
